FAERS Safety Report 12552971 (Version 7)
Quarter: 2016Q4

REPORT INFORMATION
  Report Type: Report from Study
  Country: JP (occurrence: JP)
  Receive Date: 20160713
  Receipt Date: 20161122
  Transmission Date: 20170207
  Serious: Yes (Hospitalization, Other)
  Sender: FDA-Public Use
  Company Number: JP-ASTRAZENECA-2016SE73397

PATIENT
  Age: 38 Year
  Sex: Male
  Weight: 46 kg

DRUGS (8)
  1. TAGRISSO [Suspect]
     Active Substance: OSIMERTINIB
     Indication: NON-SMALL CELL LUNG CANCER
     Route: 048
     Dates: start: 20160603, end: 20160701
  2. OPDIVO [Suspect]
     Active Substance: NIVOLUMAB
     Indication: NON-SMALL CELL LUNG CANCER
     Route: 065
     Dates: start: 20160229, end: 20160328
  3. MIYA-BM [Concomitant]
     Active Substance: CLOSTRIDIUM BUTYRICUM SPORES STRAIN M-55
     Indication: GASTROINTESTINAL DISORDER
     Dosage: 3.0G UNKNOWN
     Route: 048
  4. ETODOLAC. [Concomitant]
     Active Substance: ETODOLAC
     Indication: CANCER PAIN
     Dosage: 400.0MG UNKNOWN
     Route: 048
  5. TAGRISSO [Suspect]
     Active Substance: OSIMERTINIB
     Indication: NON-SMALL CELL LUNG CANCER
     Route: 048
     Dates: start: 20160914, end: 20160925
  6. OXYCONTIN [Concomitant]
     Active Substance: OXYCODONE HYDROCHLORIDE
     Indication: CANCER PAIN
     Dosage: 90.0MG UNKNOWN
     Route: 048
  7. LAFUTIDINE [Concomitant]
     Active Substance: LAFUTIDINE
     Indication: GASTROINTESTINAL HAEMORRHAGE
     Dosage: 20.0MG UNKNOWN
     Route: 048
  8. OXINORM [Concomitant]
     Active Substance: OXYCODONE HYDROCHLORIDE
     Indication: CANCER PAIN
     Dosage: 10.0MG AS REQUIRED
     Route: 048

REACTIONS (3)
  - Eosinophilic pneumonia [Recovering/Resolving]
  - Malignant neoplasm progression [Unknown]
  - Pulmonary alveolar haemorrhage [Recovered/Resolved]

NARRATIVE: CASE EVENT DATE: 20160630
